FAERS Safety Report 4993448-8 (Version None)
Quarter: 2006Q2

REPORT INFORMATION
  Report Type: 
  Country: None (occurrence: None)
  Receive Date: 20060504
  Receipt Date: 20060504
  Transmission Date: 20061013
  Serious: Yes (Hospitalization)
  Sender: FDA-Public Use
  Company Number: None

PATIENT
  Age: 79 Year
  Sex: Male
  Weight: 98.6 kg

DRUGS (2)
  1. COUMADIN [Suspect]
     Indication: PULMONARY EMBOLISM
     Dosage: 6 MG DAILY PO
     Route: 048
  2. NAPROXEN [Suspect]
     Indication: ARTHRITIS
     Dosage: 500 MG BID PO [2 WEEKS PRIOR TO ADMIT]
     Route: 048

REACTIONS (3)
  - GASTROINTESTINAL ULCER HAEMORRHAGE [None]
  - HAEMATEMESIS [None]
  - HYPERCOAGULATION [None]
